FAERS Safety Report 5657871-0 (Version None)
Quarter: 2008Q1

REPORT INFORMATION
  Report Type: 
  Country: None (occurrence: None)
  Receive Date: 20080310
  Receipt Date: 20080227
  Transmission Date: 20080703
  Serious: Yes (Hospitalization, Other)
  Sender: FDA-Public Use
  Company Number: PHFR2008GB00913

PATIENT
  Sex: Male

DRUGS (3)
  1. CICLOSPORIN SANDOZ (NGX) [Suspect]
     Indication: RENAL TRANSPLANT
     Route: 065
  2. CICLOSPORIN SANDOZ (NGX) [Suspect]
     Dosage: UNK, UNK
     Route: 065
     Dates: start: 19830101
  3. NEORAL [Suspect]
     Indication: RENAL TRANSPLANT
     Route: 065
     Dates: start: 19960101

REACTIONS (10)
  - ATRIAL FIBRILLATION [None]
  - CARDIAC DISORDER [None]
  - CARDIOVERSION [None]
  - DIALYSIS [None]
  - KIDNEY TRANSPLANT REJECTION [None]
  - MYOCARDIAL INFARCTION [None]
  - RENAL IMPAIRMENT [None]
  - RENAL TRANSPLANT [None]
  - ROAD TRAFFIC ACCIDENT [None]
  - TRANSIENT ISCHAEMIC ATTACK [None]
